FAERS Safety Report 23629613 (Version 2)
Quarter: 2024Q4

REPORT INFORMATION
  Report Type: Report from Study
  Country: CA (occurrence: CA)
  Receive Date: 20240314
  Receipt Date: 20241207
  Transmission Date: 20250114
  Serious: Yes (Other)
  Sender: JAZZ
  Company Number: CA-JAZZ-2021-CA-004227

PATIENT
  Age: 41 Year
  Sex: Female

DRUGS (13)
  1. XYREM [Suspect]
     Active Substance: SODIUM OXYBATE
     Indication: Hypersomnia
     Dosage: 2.25 GRAM, BID
     Route: 048
     Dates: start: 20200128, end: 20200309
  2. XYREM [Suspect]
     Active Substance: SODIUM OXYBATE
     Dosage: 3 GRAM, BID
     Route: 048
     Dates: start: 20200310, end: 20200714
  3. XYREM [Suspect]
     Active Substance: SODIUM OXYBATE
     Dosage: 7.5 GRAM(OTHER)
     Route: 048
     Dates: start: 20200715, end: 20201118
  4. XYREM [Suspect]
     Active Substance: SODIUM OXYBATE
     Dosage: 3.75 GRAM, BID
     Route: 048
     Dates: start: 20201119
  5. CONCERTA [Concomitant]
     Active Substance: METHYLPHENIDATE HYDROCHLORIDE
     Dosage: UNK
     Dates: start: 2017, end: 2017
  6. VYVANSE [Concomitant]
     Active Substance: LISDEXAMFETAMINE DIMESYLATE
     Dosage: UNK
     Dates: start: 2017, end: 2017
  7. DEXEDRINE [Concomitant]
     Active Substance: DEXTROAMPHETAMINE SULFATE
     Dosage: UNK
     Dates: start: 2015, end: 2015
  8. MODAFINIL [Concomitant]
     Active Substance: MODAFINIL
     Dosage: UNK
     Dates: start: 2018, end: 2018
  9. DULOXETINE [Concomitant]
     Active Substance: DULOXETINE
     Dosage: UNK
  10. CYMBALTA [Concomitant]
     Active Substance: DULOXETINE HYDROCHLORIDE
     Dosage: UNK
  11. ADDERALL [Concomitant]
     Active Substance: AMPHETAMINE ASPARTATE\AMPHETAMINE SULFATE\DEXTROAMPHETAMINE SACCHARATE\DEXTROAMPHETAMINE SULFATE
     Dosage: 25 MG WEEKDAYS
     Dates: start: 2015
  12. ADDERALL [Concomitant]
     Active Substance: AMPHETAMINE ASPARTATE\AMPHETAMINE SULFATE\DEXTROAMPHETAMINE SACCHARATE\DEXTROAMPHETAMINE SULFATE
     Dosage: 30 MG WEEKENDS
  13. ADDERALL [Concomitant]
     Active Substance: AMPHETAMINE ASPARTATE\AMPHETAMINE SULFATE\DEXTROAMPHETAMINE SACCHARATE\DEXTROAMPHETAMINE SULFATE
     Dosage: 50 MG WEEKDAYS
     Dates: start: 2015

REACTIONS (4)
  - Surgery [Unknown]
  - Nasopharyngitis [Unknown]
  - Illness [Unknown]
  - Product administration interrupted [Unknown]

NARRATIVE: CASE EVENT DATE: 20200101
